FAERS Safety Report 8431465-6 (Version None)
Quarter: 2012Q2

REPORT INFORMATION
  Report Type: 
  Country: None (occurrence: None)
  Receive Date: 20120604
  Receipt Date: 20120524
  Transmission Date: 20120825
  Serious: Yes (Other)
  Sender: FDA-Public Use
  Company Number: CIP06001387

PATIENT
  Age: 76 Year
  Sex: Male

DRUGS (9)
  1. URSO 250 [Concomitant]
  2. ROCALTROL [Concomitant]
  3. NADOLOL [Concomitant]
  4. ACTONEL [Suspect]
     Indication: OSTEOPOROSIS
     Dosage: 35 MG ONCE WEEKLY, ORAL; 35 MG ONCE WEEKLY,ORAL; 35 MG ONCE WEEKLY, ORAL; 35 MG ONCE WEEKLY, ORAL
     Route: 048
     Dates: start: 20040101, end: 20071101
  5. ACTONEL [Suspect]
     Indication: OSTEOPOROSIS
     Dosage: 35 MG ONCE WEEKLY, ORAL; 35 MG ONCE WEEKLY,ORAL; 35 MG ONCE WEEKLY, ORAL; 35 MG ONCE WEEKLY, ORAL
     Route: 048
     Dates: start: 20031101, end: 20040302
  6. ACTONEL [Suspect]
     Indication: OSTEOPOROSIS
     Dosage: 35 MG ONCE WEEKLY, ORAL; 35 MG ONCE WEEKLY,ORAL; 35 MG ONCE WEEKLY, ORAL; 35 MG ONCE WEEKLY, ORAL
     Route: 048
     Dates: start: 19820101
  7. ACTONEL [Suspect]
     Indication: OSTEOPOROSIS
     Dosage: 35 MG ONCE WEEKLY, ORAL; 35 MG ONCE WEEKLY,ORAL; 35 MG ONCE WEEKLY, ORAL; 35 MG ONCE WEEKLY, ORAL
     Route: 048
     Dates: start: 20070101, end: 20091101
  8. TUMS /0019360/ (CALCIUM CARBONATE, MAGNESIUM CARBONATE, MAGNESIUM TRIS [Concomitant]
  9. VITAMIN D /0031850/ (COLECALCIFEROL) [Concomitant]

REACTIONS (20)
  - ARTHRALGIA [None]
  - WRIST FRACTURE [None]
  - IMPAIRED HEALING [None]
  - DEVICE FAILURE [None]
  - MUSCULOSKELETAL PAIN [None]
  - DYSPNOEA [None]
  - PRODUCT QUALITY ISSUE [None]
  - ANKLE FRACTURE [None]
  - GINGIVAL RECESSION [None]
  - PERIODONTITIS [None]
  - MUSCULOSKELETAL CHEST PAIN [None]
  - IMPLANT SITE INFECTION [None]
  - TOOTH EXTRACTION [None]
  - MUSCLE SPASMS [None]
  - FLANK PAIN [None]
  - LOWER LIMB FRACTURE [None]
  - OEDEMA PERIPHERAL [None]
  - OSTEOMYELITIS [None]
  - DYSSTASIA [None]
  - GAIT DISTURBANCE [None]
